FAERS Safety Report 11847528 (Version 1)
Quarter: 2015Q4

REPORT INFORMATION
  Report Type: Spontaneous
  Country: JP (occurrence: JP)
  Receive Date: 20151217
  Receipt Date: 20151217
  Transmission Date: 20160305
  Serious: Yes (Other)
  Sender: FDA-Public Use
  Company Number: PHJP1900JP001145

PATIENT
  Age: 72 Year
  Sex: Female

DRUGS (6)
  1. PENTCILLIN [Concomitant]
     Active Substance: PIPERACILLIN SODIUM
     Indication: POST PROCEDURAL INFECTION
     Dosage: 4 G, UNK
     Dates: start: 19820212, end: 19820415
  2. SAGAMICIN//MICRONOMICIN [Concomitant]
     Indication: PRODUCT USED FOR UNKNOWN INDICATION
     Dosage: 240 MG, UNK
     Route: 030
     Dates: start: 19820223, end: 19820415
  3. HALOSPOR [Concomitant]
     Indication: MALNUTRITION
     Dosage: 4 G, UNK
     Dates: start: 19820226, end: 19820330
  4. VOLTAREN [Suspect]
     Active Substance: DICLOFENAC SODIUM
     Indication: POSTOPERATIVE FEVER
     Dosage: 50 MG, UNK
     Dates: start: 19820226, end: 19820226
  5. HICALIQ [Concomitant]
     Active Substance: CALCIUM GLUCONATE\DEXTROSE\MAGNESIUM SULFATE\POTASSIUM ACETATE\POTASSIUM PHOSPHATE, DIBASIC\ZINC SULFATE
     Indication: MALNUTRITION
     Dosage: 1400 ML, UNK
     Dates: start: 19820226, end: 19820330
  6. PROTEAMIN 12X [Concomitant]
     Indication: MALNUTRITION
     Dosage: 800 ML, UNK
     Dates: start: 19820226, end: 19820330

REACTIONS (5)
  - Pyrexia [Not Recovered/Not Resolved]
  - Cyanosis [Unknown]
  - Blood pressure increased [Unknown]
  - Shock [Recovered/Resolved]
  - Blood pressure decreased [Unknown]
